FAERS Safety Report 8986660 (Version 3)
Quarter: 2013Q1

REPORT INFORMATION
  Report Type: Spontaneous
  Country: TR (occurrence: TR)
  Receive Date: 20121227
  Receipt Date: 20130204
  Transmission Date: 20140127
  Serious: Yes (Life-Threatening)
  Sender: FDA-Public Use
  Company Number: PHHY2012TR119894

PATIENT
  Age: 11 Year
  Sex: Male
  Weight: 30 kg

DRUGS (3)
  1. MYFORTIC [Suspect]
     Indication: RENAL TRANSPLANT
     Dosage: 180+180 MG, UNK
     Route: 048
  2. MYFORTIC [Interacting]
     Dosage: 360+360 MG, UNK
     Route: 048
     Dates: start: 201209
  3. PROGRAF [Interacting]
     Dosage: 1+1.5 TABLET
     Route: 048

REACTIONS (10)
  - Pleural effusion [Not Recovered/Not Resolved]
  - Scrotal oedema [Not Recovered/Not Resolved]
  - Proteinuria [Not Recovered/Not Resolved]
  - Localised oedema [Not Recovered/Not Resolved]
  - Oedema peripheral [Not Recovered/Not Resolved]
  - Hypertension [Not Recovered/Not Resolved]
  - Tachycardia [Not Recovered/Not Resolved]
  - Weight increased [Unknown]
  - Blood creatinine increased [Unknown]
  - Drug interaction [Unknown]
